FAERS Safety Report 20903620 (Version 1)
Quarter: 2022Q2

REPORT INFORMATION
  Report Type: Spontaneous
  Country: DE (occurrence: DE)
  Receive Date: 20220602
  Receipt Date: 20220602
  Transmission Date: 20220721
  Serious: Yes (Hospitalization)
  Sender: FDA-Public Use
  Company Number: None

PATIENT
  Age: 12 Year
  Sex: Female
  Weight: 61 kg

DRUGS (3)
  1. METOCLOPRAMIDE [Suspect]
     Active Substance: METOCLOPRAMIDE
     Indication: Abdominal pain
     Dosage: UNIT DOSE: 30 MG, FREQUENCY : 1 TOTAL
     Route: 048
     Dates: start: 20220507, end: 20220507
  2. METOCLOPRAMIDE [Suspect]
     Active Substance: METOCLOPRAMIDE
     Indication: Nausea
     Dosage: UNIT DOSE: 20 MG, FREQUENCY : 1 TOTAL
     Route: 048
     Dates: start: 20220506, end: 20220506
  3. METOCLOPRAMIDE [Suspect]
     Active Substance: METOCLOPRAMIDE
     Dosage: UNIT DOSE: 10 MG, FREQUENCY : 1 TOTAL
     Route: 048
     Dates: start: 20220505, end: 20220505

REACTIONS (3)
  - Dyskinesia [Recovered/Resolved]
  - Neck pain [Recovered/Resolved]
  - Dyskinesia [Recovered/Resolved]

NARRATIVE: CASE EVENT DATE: 20220507
